FAERS Safety Report 16106481 (Version 2)
Quarter: 2019Q1

REPORT INFORMATION
  Report Type: Spontaneous
  Country: CH (occurrence: CH)
  Receive Date: 20190322
  Receipt Date: 20190325
  Transmission Date: 20190418
  Serious: Yes (Hospitalization)
  Sender: FDA-Public Use
  Company Number: CH-BAYER-2019-051273

PATIENT
  Age: 82 Year
  Sex: Male
  Weight: 54 kg

DRUGS (4)
  1. CIPROXIN 500 MG [Suspect]
     Active Substance: CIPROFLOXACIN
     Indication: URINARY TRACT INFECTION
     Dosage: DOSAGE AND START DATE OF TREATMENT ARE UNKNOWN;
     Route: 048
     Dates: start: 201901, end: 201902
  2. XARELTO [Concomitant]
     Active Substance: RIVAROXABAN
     Dosage: 1 DF, UNK
     Route: 048
  3. SOTALEX [Concomitant]
     Active Substance: SOTALOL
     Dosage: 80 MG, UNK
     Route: 048
  4. DUODART [Concomitant]
     Active Substance: DUTASTERIDE\TAMSULOSIN
     Dosage: 1 DF, UNK
     Route: 048

REACTIONS (2)
  - Acute kidney injury [Recovered/Resolved]
  - Rhabdomyolysis [Recovered/Resolved]

NARRATIVE: CASE EVENT DATE: 20190204
